FAERS Safety Report 10213490 (Version 1)
Quarter: 2014Q2

REPORT INFORMATION
  Report Type: Spontaneous
  Country: FR (occurrence: None)
  Receive Date: 20140529
  Receipt Date: 20140529
  Transmission Date: 20141212
  Serious: Yes (Hospitalization)
  Sender: FDA-Public Use
  Company Number: 2356294

PATIENT
  Age: 69 Year
  Sex: Female

DRUGS (12)
  1. PACLITAXEL [Suspect]
     Indication: SQUAMOUS CELL CARCINOMA
     Route: 042
     Dates: start: 20130923, end: 20131217
  2. CARBOPLATIN [Concomitant]
  3. CARDENSIEL [Concomitant]
  4. DIFFU K [Concomitant]
  5. LASIX /00032601/ [Concomitant]
  6. INSPRA /01613601/ [Concomitant]
  7. INEXIUM /01479302/ [Concomitant]
  8. CORDARONE [Concomitant]
  9. PREVISCAN /00261401/ [Concomitant]
  10. TRIATEC /00885601/ [Concomitant]
  11. SERETIDE [Concomitant]
  12. NOVONORM [Concomitant]

REACTIONS (3)
  - Malaise [None]
  - Dyspnoea [None]
  - Respiratory distress [None]
